FAERS Safety Report 5302180-2 (Version None)
Quarter: 2007Q2

REPORT INFORMATION
  Report Type: 
  Country: None (occurrence: None)
  Receive Date: 20070419
  Receipt Date: 20070410
  Transmission Date: 20071010
  Serious: Yes (Hospitalization)
  Sender: FDA-Public Use
  Company Number: 2007AC00573

PATIENT
  Age: 28 Year
  Sex: Male
  Weight: 75 kg

DRUGS (6)
  1. CANDESARTAN [Suspect]
     Indication: HYPERTENSION
     Route: 048
  2. CANDESARTAN [Suspect]
     Dosage: RE-STARTED AT SAME DOSE.
     Route: 048
  3. LERCANIDIPINE [Concomitant]
     Indication: HYPERTENSION
  4. HYDROCHLOROTHIAZIDE [Concomitant]
     Indication: HYPERTENSION
  5. URAPIDIL [Concomitant]
     Indication: HYPERTENSION
  6. RILMENIDINE [Concomitant]
     Indication: HYPERTENSION

REACTIONS (8)
  - CHEST PAIN [None]
  - DIASTOLIC DYSFUNCTION [None]
  - DYSPNOEA [None]
  - HYPERTENSION [None]
  - MITRAL VALVE INCOMPETENCE [None]
  - RENIN INCREASED [None]
  - TRICUSPID VALVE INCOMPETENCE [None]
  - VENTRICULAR HYPERTROPHY [None]
